FAERS Safety Report 5730335-1 (Version None)
Quarter: 2008Q2

REPORT INFORMATION
  Report Type: 
  Country: None (occurrence: None)
  Receive Date: 20080505
  Receipt Date: 20080505
  Transmission Date: 20081010
  Serious: Yes (Hospitalization)
  Sender: FDA-Public Use
  Company Number: None

PATIENT
  Age: 48 Year
  Sex: Male
  Weight: 96.1626 kg

DRUGS (1)
  1. VIAGRA [Suspect]
     Dates: start: 20080418, end: 20080418

REACTIONS (1)
  - FRACTURE OF PENIS [None]
